FAERS Safety Report 9663850 (Version 1)
Quarter: 2013Q4

REPORT INFORMATION
  Report Type: Spontaneous
  Country: US (occurrence: None)
  Receive Date: 20131030
  Receipt Date: 20131030
  Transmission Date: 20140711
  Serious: Yes (Disabling, Other)
  Sender: FDA-Public Use
  Company Number: None

PATIENT
  Age: 52 Year
  Sex: Female
  Weight: 79.38 kg

DRUGS (16)
  1. SEROQUEL [Suspect]
     Indication: BIPOLAR I DISORDER
     Dosage: 1 PILL BEDTIME BY MOUTH
     Route: 048
     Dates: start: 201011, end: 201212
  2. SEROQUEL [Suspect]
     Indication: DEPRESSION
     Dosage: 1 PILL BEDTIME BY MOUTH
     Route: 048
     Dates: start: 201011, end: 201212
  3. SEROQUEL [Suspect]
     Indication: DRUG RESISTANCE
     Dosage: 1 PILL BEDTIME BY MOUTH
     Route: 048
     Dates: start: 201011, end: 201212
  4. NECON [Concomitant]
  5. JANUVIA [Concomitant]
  6. GUPIZIDE [Concomitant]
  7. METFORMIN [Concomitant]
  8. HALDOL [Concomitant]
  9. DOXEPIN [Concomitant]
  10. LOVAZA [Concomitant]
  11. ZYRTEC [Concomitant]
  12. MUCINEX [Concomitant]
  13. ALEVE [Concomitant]
  14. CALCIUM + VITAMIN D [Concomitant]
  15. BIOTIN [Concomitant]
  16. PLEXUS SLIM [Concomitant]

REACTIONS (2)
  - Diabetes mellitus [None]
  - Fungal infection [None]
